FAERS Safety Report 20423746 (Version 1)
Quarter: 2022Q1

REPORT INFORMATION
  Report Type: Report from Study
  Country: IT (occurrence: IT)
  Receive Date: 20220203
  Receipt Date: 20220203
  Transmission Date: 20220423
  Serious: Yes (Hospitalization, Other)
  Sender: FDA-Public Use
  Company Number: None

PATIENT

DRUGS (2)
  1. GRACIAL [Interacting]
     Active Substance: DESOGESTREL\ETHINYL ESTRADIOL
     Indication: Oral contraception
     Dosage: 1 DOSAGE FORM, QD
     Route: 048
  2. PARNAPARIN SODIUM [Interacting]
     Active Substance: PARNAPARIN SODIUM
     Indication: Thrombosis prophylaxis
     Dosage: 1 DOSAGE FORM, QD, 4.250 U.I
     Route: 058
     Dates: start: 20190508, end: 20190524

REACTIONS (2)
  - Drug interaction [Unknown]
  - Deep vein thrombosis [Recovered/Resolved]

NARRATIVE: CASE EVENT DATE: 20190524
